FAERS Safety Report 24405619 (Version 1)
Quarter: 2024Q4

REPORT INFORMATION
  Report Type: Spontaneous
  Country: US (occurrence: US)
  Receive Date: 20241007
  Receipt Date: 20241007
  Transmission Date: 20250115
  Serious: No
  Sender: GLAXOSMITHKLINE
  Company Number: US-GSKCCFUS-Case-02114237_AE-116677

PATIENT
  Sex: Male

DRUGS (2)
  1. BREO ELLIPTA [Suspect]
     Active Substance: FLUTICASONE FUROATE\VILANTEROL TRIFENATATE
     Indication: Chronic obstructive pulmonary disease
     Dosage: UNK UNK, BID 200/25MCG
  2. BREO ELLIPTA [Suspect]
     Active Substance: FLUTICASONE FUROATE\VILANTEROL TRIFENATATE
     Dosage: UNK UNK, QD 200/25MCG

REACTIONS (7)
  - Anxiety [Unknown]
  - Heart rate increased [Unknown]
  - Disturbance in attention [Unknown]
  - Pain [Unknown]
  - Asthenia [Unknown]
  - Dyspnoea [Unknown]
  - Extra dose administered [Unknown]
